FAERS Safety Report 9003974 (Version 2)
Quarter: 2013Q2

REPORT INFORMATION
  Report Type: Spontaneous
  Country: US (occurrence: US)
  Receive Date: 20130109
  Receipt Date: 20130409
  Transmission Date: 20140414
  Serious: No
  Sender: FDA-Public Use
  Company Number: US-009507513-1301USA000465

PATIENT
  Age: 67 Year
  Sex: Male

DRUGS (3)
  1. AZASITE [Suspect]
     Indication: DRY EYE
     Dosage: 2 GTT, QD
     Route: 031
     Dates: start: 20121211
  2. AZASITE [Suspect]
     Indication: MEIBOMIAN GLAND DYSFUNCTION
  3. ARTIFICIAL TEARS [Suspect]
     Indication: MEIBOMIAN GLAND DYSFUNCTION

REACTIONS (3)
  - Eye irritation [Recovered/Resolved]
  - Incorrect storage of drug [Unknown]
  - Off label use [Unknown]
